FAERS Safety Report 7176692-3 (Version None)
Quarter: 2010Q4

REPORT INFORMATION
  Report Type: 
  Country: None (occurrence: None)
  Receive Date: 20101216
  Receipt Date: 20101216
  Transmission Date: 20110411
  Serious: No
  Sender: FDA-Public Use
  Company Number: None

PATIENT
  Sex: Female
  Weight: 96.1626 kg

DRUGS (2)
  1. ANTARA CAPS 130MG LUPIN PHARMACY [Suspect]
     Indication: BLOOD CHOLESTEROL INCREASED
     Dosage: ONE EVERY DAY PO
     Route: 048
     Dates: start: 20101010, end: 20101208
  2. ANTARA CAPS 130MG LUPIN PHARMACY [Suspect]
     Indication: BLOOD TRIGLYCERIDES INCREASED
     Dosage: ONE EVERY DAY PO
     Route: 048
     Dates: start: 20101010, end: 20101208

REACTIONS (4)
  - ABDOMINAL PAIN UPPER [None]
  - ASTHENIA [None]
  - NAUSEA [None]
  - VOMITING [None]
